FAERS Safety Report 7291905-5 (Version None)
Quarter: 2011Q1

REPORT INFORMATION
  Report Type: 
  Country: None (occurrence: None)
  Receive Date: 20110214
  Receipt Date: 20110202
  Transmission Date: 20110831
  Serious: Yes (Hospitalization)
  Sender: FDA-Public Use
  Company Number: NL-MEDIMMUNE-MEDI-0012376

PATIENT
  Sex: Male
  Weight: 2.6 kg

DRUGS (1)
  1. SYNAGIS [Suspect]
     Route: 030
     Dates: start: 20101231, end: 20101231

REACTIONS (5)
  - PYREXIA [None]
  - GASTROINTESTINAL DISORDER [None]
  - VOMITING [None]
  - DIARRHOEA [None]
  - GASTROINTESTINAL PAIN [None]
